FAERS Safety Report 16327585 (Version 2)
Quarter: 2019Q2

REPORT INFORMATION
  Report Type: Report from Study
  Country: US (occurrence: US)
  Receive Date: 20190517
  Receipt Date: 20190528
  Transmission Date: 20190711
  Serious: Yes (Other)
  Sender: FDA-Public Use
  Company Number: US-BIOGEN-2019BI00717307

PATIENT
  Age: 52 Year
  Sex: Male

DRUGS (4)
  1. TECFIDERA [Suspect]
     Active Substance: DIMETHYL FUMARATE
     Dosage: HCP INSTRUCTIONS AS 120 MG DAILY X7 DAYS, THEN 120 MG BID X7 DAYS, 240 MG DAILY AND THE 240 MG BID
     Route: 048
     Dates: start: 20190324
  2. TECFIDERA [Suspect]
     Active Substance: DIMETHYL FUMARATE
     Indication: MULTIPLE SCLEROSIS
     Dosage: STARTING DOSE
     Route: 048
     Dates: start: 20190317, end: 20190323
  3. TECFIDERA [Suspect]
     Active Substance: DIMETHYL FUMARATE
     Dosage: HCP INSTRUCTIONS AS 120 MG DAILY X7 DAYS, THEN 120 MG BID X7 DAYS, 240 MG DAILY AND THE 240 MG BID
     Route: 048
  4. TECFIDERA [Suspect]
     Active Substance: DIMETHYL FUMARATE
     Dosage: MAINTENANCE DOSE
     Route: 048
     Dates: start: 201903

REACTIONS (10)
  - Malaise [Unknown]
  - Decreased appetite [Not Recovered/Not Resolved]
  - Blindness unilateral [Recovered/Resolved]
  - Erythema [Unknown]
  - Prescribed underdose [Not Recovered/Not Resolved]
  - Abdominal discomfort [Unknown]
  - Deafness unilateral [Recovered/Resolved]
  - Night sweats [Unknown]
  - Hot flush [Unknown]
  - Multiple sclerosis relapse [Not Recovered/Not Resolved]

NARRATIVE: CASE EVENT DATE: 20190317
